FAERS Safety Report 11634874 (Version 1)
Quarter: 2015Q4

REPORT INFORMATION
  Report Type: Spontaneous
  Country: US (occurrence: US)
  Receive Date: 20151015
  Receipt Date: 20151015
  Transmission Date: 20160304
  Serious: Yes (Other)
  Sender: FDA-Public Use
  Company Number: US-SA-2015SA068377

PATIENT
  Age: 54 Year

DRUGS (2)
  1. EVEROLIMUS [Concomitant]
     Active Substance: EVEROLIMUS
     Dosage: FREQUENCY: EVERY M, W, F
     Route: 048
     Dates: start: 20120810, end: 20120817
  2. CAMPATH [Suspect]
     Active Substance: ALEMTUZUMAB
     Dosage: ROUTE: SUBQU?FREQUENCY: D 1,3,5 EACH CYCLE
     Dates: start: 20120808, end: 20120817

REACTIONS (1)
  - Anaphylactic reaction [Unknown]

NARRATIVE: CASE EVENT DATE: 20120817
